FAERS Safety Report 6613217-2 (Version None)
Quarter: 2010Q1

REPORT INFORMATION
  Report Type: 
  Country: None (occurrence: None)
  Receive Date: 20100304
  Receipt Date: 20100218
  Transmission Date: 20100710
  Serious: No
  Sender: FDA-Public Use
  Company Number: US-SOLVAY-00210001135

PATIENT
  Age: 18584 Day
  Sex: Female
  Weight: 62.727 kg

DRUGS (1)
  1. ANDROGEL [Suspect]
     Indication: ACCIDENTAL EXPOSURE
     Dosage: DAILY DOSE:  UNKNOWN, FREQUENCY: ONCE A DAY, VIA PUMP
     Route: 062
     Dates: start: 20040101

REACTIONS (2)
  - ALOPECIA [None]
  - BLOOD TESTOSTERONE INCREASED [None]
